FAERS Safety Report 23909347 (Version 1)
Quarter: 2024Q2

REPORT INFORMATION
  Report Type: Spontaneous
  Country: ES (occurrence: ES)
  Receive Date: 20240528
  Receipt Date: 20240528
  Transmission Date: 20240716
  Serious: Yes (Hospitalization, Other)
  Sender: FDA-Public Use
  Company Number: None

PATIENT
  Age: 61 Year
  Sex: Male

DRUGS (11)
  1. INSULIN GLARGINE [Suspect]
     Active Substance: INSULIN GLARGINE
     Indication: Type 2 diabetes mellitus
     Dosage: 54IU,QD
     Route: 058
     Dates: start: 2020
  2. DEXKETOPROFEN [Interacting]
     Active Substance: DEXKETOPROFEN
     Dosage: 25MG,Q8H
     Route: 048
     Dates: start: 20240323, end: 20240401
  3. METFORMIN HYDROCHLORIDE [Interacting]
     Active Substance: METFORMIN HYDROCHLORIDE
     Indication: Type 2 diabetes mellitus
     Dosage: 850MG,Q8H
     Route: 048
     Dates: start: 201110, end: 20240401
  4. LOSARTAN [Interacting]
     Active Substance: LOSARTAN
     Dosage: 50MG,QD
     Route: 048
     Dates: start: 2020
  5. MANIDIPINE HYDROCHLORIDE [Concomitant]
     Active Substance: MANIDIPINE HYDROCHLORIDE
     Dosage: 20MG,QD
     Route: 048
  6. PANTOPRAZOLE [Concomitant]
     Active Substance: PANTOPRAZOLE
     Dosage: 20MG,QD
     Route: 048
  7. ACETAMINOPHEN [Concomitant]
     Active Substance: ACETAMINOPHEN
     Dosage: 1G,QD
     Route: 048
     Dates: end: 20240401
  8. DIAZEPAM [Concomitant]
     Active Substance: DIAZEPAM
     Dosage: 5MG,QD
     Route: 048
  9. ASPIRIN [Concomitant]
     Active Substance: ASPIRIN
     Dosage: 100MG,QD
     Route: 048
  10. FOLIC ACID [Concomitant]
     Active Substance: FOLIC ACID
     Dosage: 5MG,48H
     Route: 048
  11. CYANOCOBALAMIN [Concomitant]
     Active Substance: CYANOCOBALAMIN
     Dosage: 1000UG,28D

REACTIONS (1)
  - Lactic acidosis [Recovering/Resolving]

NARRATIVE: CASE EVENT DATE: 20240401
